FAERS Safety Report 18770176 (Version 1)
Quarter: 2021Q1

REPORT INFORMATION
  Report Type: Spontaneous
  Country: US (occurrence: US)
  Receive Date: 20210121
  Receipt Date: 20210121
  Transmission Date: 20210419
  Serious: No
  Sender: FDA-Public Use
  Company Number: US-ZOGENIX INTERNATIONAL LIMITED, A WHOLLY OWNED SUBSIDIARY OF ZOGENIX, INC.-2020ZX000083

PATIENT
  Age: 9 Year
  Sex: Male
  Weight: 24.06 kg

DRUGS (6)
  1. PROBIOTIC CHILDREN^S TABLET [Concomitant]
     Indication: PRODUCT USED FOR UNKNOWN INDICATION
     Route: 065
  2. KLONOPIN [Concomitant]
     Active Substance: CLONAZEPAM
     Indication: SEIZURE
     Dosage: TAKEN AT BEDTIME
     Route: 065
  3. LORAZEPAM. [Concomitant]
     Active Substance: LORAZEPAM
     Indication: SEIZURE
     Route: 048
  4. FINTEPLA [Suspect]
     Active Substance: FENFLURAMINE
     Indication: SEIZURE
  5. DIAZEPAM. [Concomitant]
     Active Substance: DIAZEPAM
     Indication: SEIZURE
     Route: 065
  6. FINTEPLA [Suspect]
     Active Substance: FENFLURAMINE
     Indication: SEVERE MYOCLONIC EPILEPSY OF INFANCY
     Route: 048
     Dates: start: 20200901

REACTIONS (1)
  - COVID-19 [Unknown]

NARRATIVE: CASE EVENT DATE: 20201012
